FAERS Safety Report 17795590 (Version 1)
Quarter: 2020Q2

REPORT INFORMATION
  Report Type: Spontaneous
  Country: US (occurrence: US)
  Receive Date: 20200516
  Receipt Date: 20200516
  Transmission Date: 20200714
  Serious: No
  Sender: FDA-Public Use
  Company Number: US-GLAXOSMITHKLINE-US2020082231

PATIENT
  Age: 67 Year
  Sex: Male

DRUGS (6)
  1. VOLTAREN [Suspect]
     Active Substance: DICLOFENAC SODIUM
     Indication: ARTHRALGIA
     Dosage: UNK
  2. DICLOFENAC SODIUM GEL [Suspect]
     Active Substance: DICLOFENAC SODIUM
     Indication: ARTHRALGIA
  3. DICLOFENAC SODIUM GEL [Suspect]
     Active Substance: DICLOFENAC SODIUM
     Indication: ARTHRALGIA
     Dosage: UNK
  4. VOLTAREN [Suspect]
     Active Substance: DICLOFENAC SODIUM
     Indication: MUSCULOSKELETAL PAIN
  5. VOLTAREN [Suspect]
     Active Substance: DICLOFENAC SODIUM
     Indication: ARTHRALGIA
  6. DICLOFENAC SODIUM GEL [Suspect]
     Active Substance: DICLOFENAC SODIUM
     Indication: MUSCULOSKELETAL PAIN

REACTIONS (4)
  - Drug ineffective for unapproved indication [Unknown]
  - Product administered at inappropriate site [Unknown]
  - Product use in unapproved indication [Unknown]
  - Drug effective for unapproved indication [Unknown]
